FAERS Safety Report 7273540-8 (Version None)
Quarter: 2011Q1

REPORT INFORMATION
  Report Type: 
  Country: None (occurrence: None)
  Receive Date: 20110203
  Receipt Date: 20100723
  Transmission Date: 20110831
  Serious: No
  Sender: FDA-Public Use
  Company Number: US-ABBOTT-10P-163-0659816-00

PATIENT
  Sex: Male
  Weight: 145.28 kg

DRUGS (3)
  1. INSULIN LEVAMIR [Concomitant]
     Indication: PRODUCT USED FOR UNKNOWN INDICATION
  2. SYNTHROID [Suspect]
     Indication: AUTOIMMUNE THYROIDITIS
  3. METFORMIN [Concomitant]
     Indication: DIABETES MELLITUS INADEQUATE CONTROL

REACTIONS (4)
  - DIZZINESS [None]
  - BLOOD PRESSURE DECREASED [None]
  - NIGHT SWEATS [None]
  - FALL [None]
